FAERS Safety Report 7429378-1 (Version None)
Quarter: 2011Q2

REPORT INFORMATION
  Report Type: 
  Country: None (occurrence: None)
  Receive Date: 20110421
  Receipt Date: 20110414
  Transmission Date: 20111010
  Serious: Yes (Other)
  Sender: FDA-Public Use
  Company Number: US-EISAI INC-E3810-04633-SPO-US

PATIENT
  Age: 53 Year
  Sex: Female

DRUGS (8)
  1. CYCLOBENZAPRINE [Suspect]
  2. ZOFRAN [Suspect]
     Dosage: UNKNOWN
  3. NICODERM [Suspect]
     Indication: SMOKING CESSATION THERAPY
  4. PREDNISONE [Suspect]
     Dosage: UNKNOWN
     Route: 048
  5. ACIPHEX [Suspect]
     Dosage: UNKNOWN
     Route: 048
  6. SYMBICORT [Suspect]
     Dosage: UNKNOWN
  7. LISINOPRIL [Suspect]
     Dosage: UNKNOWN
  8. NICOTINE POLLACRILEX COMPRESSED LOZENGE [Suspect]
     Indication: SMOKING CESSATION THERAPY
     Route: 048

REACTIONS (4)
  - NIGHTMARE [None]
  - DYSPEPSIA [None]
  - DRUG ADMINISTRATION ERROR [None]
  - HALLUCINATION [None]
